FAERS Safety Report 20999910 (Version 3)
Quarter: 2022Q3

REPORT INFORMATION
  Report Type: Spontaneous
  Country: US (occurrence: US)
  Receive Date: 20220623
  Receipt Date: 20220825
  Transmission Date: 20221027
  Serious: No
  Sender: FDA-Public Use
  Company Number: US-PFIZER INC-202200857307

PATIENT
  Age: 55 Year
  Sex: Female
  Weight: 99.79 kg

DRUGS (5)
  1. PAXLOVID [Suspect]
     Active Substance: NIRMATRELVIR\RITONAVIR
     Indication: COVID-19 treatment
     Dosage: UNK, 2X/DAY (300MG/ 100MG DOSE PACKAGE)
     Dates: start: 20220618
  2. PAXIL [Suspect]
     Active Substance: PAROXETINE HYDROCHLORIDE
     Indication: Anxiety
     Dosage: 20 MG (TAKES 1/2 TABLET NOW)
  3. CHOLECALCIFEROL [Concomitant]
     Active Substance: CHOLECALCIFEROL
     Dosage: UNK
  4. TYLENOL [Concomitant]
     Active Substance: ACETAMINOPHEN
     Dosage: UNK
     Dates: end: 20220618
  5. EMERGEN-ZZZZ [Concomitant]
     Indication: Sleep disorder
     Dosage: UNK

REACTIONS (3)
  - Agitation [Recovered/Resolved]
  - Hypertension [Unknown]
  - Insomnia [Recovered/Resolved]

NARRATIVE: CASE EVENT DATE: 20220619
